FAERS Safety Report 24173876 (Version 1)
Quarter: 2024Q3

REPORT INFORMATION
  Report Type: Spontaneous
  Country: US (occurrence: US)
  Receive Date: 20240805
  Receipt Date: 20240805
  Transmission Date: 20241017
  Serious: Yes (Life-Threatening, Other)
  Sender: BAYER
  Company Number: US-BAYER-2024A112125

PATIENT
  Sex: Male

DRUGS (2)
  1. ASPIRIN [Suspect]
     Active Substance: ASPIRIN
     Dosage: UNK UNK, QD
  2. TICAGRELOR [Concomitant]
     Active Substance: TICAGRELOR
     Dosage: UNK UNK, QD

REACTIONS (2)
  - Splenic haemorrhage [None]
  - Haemoglobin decreased [None]
